FAERS Safety Report 6095005-1 (Version None)
Quarter: 2009Q1

REPORT INFORMATION
  Report Type: 
  Country: None (occurrence: None)
  Receive Date: 20090227
  Receipt Date: 20090212
  Transmission Date: 20090719
  Serious: Yes (Death, Hospitalization)
  Sender: FDA-Public Use
  Company Number: ES-ELI_LILLY_AND_COMPANY-ES200902004254

PATIENT
  Age: 83 Year
  Sex: Female

DRUGS (4)
  1. FORTEO [Suspect]
     Indication: OSTEOPOROSIS
     Dosage: 20 UG, UNKNOWN
     Route: 058
     Dates: start: 20080301, end: 20081226
  2. SINTROM [Concomitant]
     Dosage: UNK, UNKNOWN
     Route: 065
  3. DACORTIN [Concomitant]
     Dosage: UNK, UNKNOWN
     Route: 065
  4. DICLOFENAC [Concomitant]
     Dosage: UNK, UNKNOWN
     Route: 065

REACTIONS (3)
  - BRAIN NEOPLASM [None]
  - HYPOXIA [None]
  - PNEUMONIA [None]
